FAERS Safety Report 8125934-6 (Version None)
Quarter: 2012Q1

REPORT INFORMATION
  Report Type: 
  Country: None (occurrence: None)
  Receive Date: 20120209
  Receipt Date: 20120207
  Transmission Date: 20120608
  Serious: Yes (Other)
  Sender: FDA-Public Use
  Company Number: NL-AMGEN-NLDSP2012008324

PATIENT
  Sex: Female

DRUGS (2)
  1. PROLIA [Suspect]
     Indication: PRODUCT USED FOR UNKNOWN INDICATION
     Dosage: UNK
     Dates: start: 20110802
  2. VACCINES [Concomitant]
     Dosage: UNK
     Dates: start: 20110804

REACTIONS (3)
  - COUGH [None]
  - SARCOIDOSIS [None]
  - SWELLING [None]
